FAERS Safety Report 6445575-6 (Version None)
Quarter: 2009Q4

REPORT INFORMATION
  Report Type: 
  Country: None (occurrence: None)
  Receive Date: 20091110
  Receipt Date: 20090826
  Transmission Date: 20100525
  Serious: No
  Sender: FDA-Public Use
  Company Number: 1000008453

PATIENT
  Age: 37 Year
  Sex: Female
  Weight: 67.7 kg

DRUGS (11)
  1. SAVELLA [Suspect]
     Indication: FIBROMYALGIA
     Dosage: 12.5 MG (12.5 MG, 1 IN 1 D), ORAL : 25 MG (12.5 MG, 2 IN 1 D), ORAL : 50 MG (25 MG, 2 IN 1 D), ORAL
     Route: 048
     Dates: start: 20090616, end: 20090616
  2. SAVELLA [Suspect]
     Indication: FIBROMYALGIA
     Dosage: 12.5 MG (12.5 MG, 1 IN 1 D), ORAL : 25 MG (12.5 MG, 2 IN 1 D), ORAL : 50 MG (25 MG, 2 IN 1 D), ORAL
     Route: 048
     Dates: start: 20090617, end: 20090618
  3. SAVELLA [Suspect]
     Indication: FIBROMYALGIA
     Dosage: 12.5 MG (12.5 MG, 1 IN 1 D), ORAL : 25 MG (12.5 MG, 2 IN 1 D), ORAL : 50 MG (25 MG, 2 IN 1 D), ORAL
     Route: 048
     Dates: start: 20090619, end: 20090622
  4. SAVELLA [Suspect]
     Indication: FIBROMYALGIA
     Dosage: 100 MG (50 MG, 2 IN 1 D), ORAL
     Route: 048
     Dates: start: 20090623, end: 20090730
  5. ZANAFLEX [Suspect]
     Dosage: 4 MG (4 MG, AT BEDTIME), ORAL
     Route: 048
     Dates: end: 20090730
  6. FLEXERIL [Suspect]
     Dosage: 10 MG (10 MG, AT BEDTIME), ORAL
     Route: 048
     Dates: end: 20090730
  7. CLONAZEPAM [Suspect]
     Dosage: (0.5 MG, AS REQUIRED), ORAL
     Route: 048
     Dates: end: 20090730
  8. LEXAPRO [Concomitant]
  9. SYNTHROID [Concomitant]
  10. OXYCODONE HYDROCHLORIDE ER [Concomitant]
  11. OXYCODONE INSTANT RELEASE [Concomitant]

REACTIONS (2)
  - ADVERSE DRUG REACTION [None]
  - EXTRAPYRAMIDAL DISORDER [None]
